FAERS Safety Report 8626961 (Version 5)
Quarter: 2023Q2

REPORT INFORMATION
  Report Type: Report from Study
  Country: GB (occurrence: GB)
  Receive Date: 20120620
  Receipt Date: 20230627
  Transmission Date: 20230722
  Serious: Yes (Congenital Anomaly, Other)
  Sender: FDA-Public Use
  Company Number: GB-GILEAD-2012-0056858

PATIENT
  Sex: Female
  Weight: 2.955 kg

DRUGS (4)
  1. TENOFOVIR DISOPROXIL FUMARATE [Suspect]
     Active Substance: TENOFOVIR DISOPROXIL FUMARATE
     Indication: HIV infection
     Dosage: 245 MG, QD
     Route: 064
  2. EPIVIR [Concomitant]
     Active Substance: LAMIVUDINE
     Indication: HIV infection
     Dosage: 300 MG, QD
     Route: 064
  3. VIRAMUNE [Concomitant]
     Active Substance: NEVIRAPINE
     Indication: HIV infection
     Dosage: 400 MG, QD
     Route: 064
  4. FOLATE SODIUM [Concomitant]
     Active Substance: FOLATE SODIUM
     Indication: Product used for unknown indication
     Route: 064

REACTIONS (2)
  - Craniofacial deformity [Unknown]
  - Foetal exposure during pregnancy [Recovered/Resolved]
